FAERS Safety Report 9097728 (Version 2)
Quarter: 2013Q1

REPORT INFORMATION
  Report Type: Spontaneous
  Country: BE (occurrence: BE)
  Receive Date: 20130212
  Receipt Date: 20130307
  Transmission Date: 20140127
  Serious: Yes (Other)
  Sender: FDA-Public Use
  Company Number: BE-BAYER-2013-015259

PATIENT
  Age: 63 Year
  Sex: Male
  Weight: 50 kg

DRUGS (1)
  1. NEXAVAR [Suspect]
     Indication: RENAL CANCER METASTATIC
     Dosage: 400 MG, BID
     Route: 048
     Dates: start: 20121003

REACTIONS (2)
  - Osteitis [Not Recovered/Not Resolved]
  - Pain [Not Recovered/Not Resolved]
